FAERS Safety Report 18581656 (Version 1)
Quarter: 2020Q4

REPORT INFORMATION
  Report Type: Spontaneous
  Country: US (occurrence: US)
  Receive Date: 20201009
  Receipt Date: 20201009
  Transmission Date: 20210114
  Serious: No
  Sender: FDA-Public Use
  Company Number: None

PATIENT
  Age: 6 Decade
  Sex: Female

DRUGS (3)
  1. METAMIZOLE SODIUM [Suspect]
     Active Substance: METAMIZOLE SODIUM
     Indication: COVID-19
     Dates: start: 2020
  2. PREDNISOLONE. [Suspect]
     Active Substance: PREDNISOLONE
     Indication: COVID-19
     Dates: start: 2020
  3. AMOXICILLIN. [Suspect]
     Active Substance: AMOXICILLIN
     Indication: COVID-19
     Dates: start: 2020

REACTIONS (5)
  - Rash maculo-papular [None]
  - Vasculitis [None]
  - Product use issue [None]
  - Intentional product use issue [None]
  - Pruritus [None]
